FAERS Safety Report 4498809-1 (Version None)
Quarter: 2004Q3

REPORT INFORMATION
  Report Type: 
  Country: None (occurrence: None)
  Receive Date: 20040927
  Receipt Date: 20040617
  Transmission Date: 20050211
  Serious: No
  Sender: FDA-Public Use
  Company Number: USA040670428

PATIENT
  Age: 23 Year
  Sex: Male
  Weight: 75 kg

DRUGS (2)
  1. STRATTERA [Suspect]
     Indication: ATTENTION DEFICIT/HYPERACTIVITY DISORDER
     Dosage: 105 MG DAY
     Dates: start: 20030201
  2. RITALIN [Concomitant]

REACTIONS (2)
  - PREMATURE EJACULATION [None]
  - PRESCRIBED OVERDOSE [None]
